FAERS Safety Report 6132943-5 (Version None)
Quarter: 2009Q1

REPORT INFORMATION
  Report Type: 
  Country: None (occurrence: None)
  Receive Date: 20090326
  Receipt Date: 20090319
  Transmission Date: 20090719
  Serious: Yes (Other)
  Sender: FDA-Public Use
  Company Number: PHHY2009JP10486

PATIENT
  Age: 76 Year
  Sex: Male

DRUGS (2)
  1. ZOMETA [Suspect]
     Indication: METASTASES TO BONE
     Dosage: UNK
     Route: 042
  2. LEUPROLIDE ACETATE [Concomitant]
     Indication: PROSTATE CANCER
     Route: 042

REACTIONS (2)
  - OSTEOMYELITIS [None]
  - PURULENT DISCHARGE [None]
